FAERS Safety Report 9512610 (Version 1)
Quarter: 2013Q1

REPORT INFORMATION
  Report Type: Spontaneous
  Country: US (occurrence: None)
  Receive Date: 20130305
  Receipt Date: 20130305
  Transmission Date: 20140127
  Serious: Yes (Other)
  Sender: FDA-Public Use
  Company Number: 163-21880-12051171

PATIENT
  Age: 84 Year
  Sex: Female
  Weight: 46.3 kg

DRUGS (3)
  1. REVLIMID [Suspect]
     Indication: MYELODYSPLASTIC SYNDROME
     Dosage: 5 MG, 28 IN 28 D, PO
     Route: 048
     Dates: start: 20120411
  2. ARANESP (DARBEPOETIN ALFA) (300 MICROGRAM, INJECTION) [Suspect]
     Indication: ANAEMIA
     Dosage: 21.4286 UG, 1 IN 2 WK, SC
     Route: 058
     Dates: start: 20120201
  3. VIDAZA (AZACITIDINE) (UNKNOWN) [Concomitant]

REACTIONS (10)
  - Weight decreased [None]
  - Vertigo [None]
  - Fall [None]
  - Muscular weakness [None]
  - Gait disturbance [None]
  - Diarrhoea [None]
  - Dehydration [None]
  - Fatigue [None]
  - White blood cell count decreased [None]
  - Hypersomnia [None]
